FAERS Safety Report 7510080-2 (Version None)
Quarter: 2011Q2

REPORT INFORMATION
  Report Type: 
  Country: None (occurrence: None)
  Receive Date: 20110527
  Receipt Date: 20110524
  Transmission Date: 20111010
  Serious: Yes (Other)
  Sender: FDA-Public Use
  Company Number: US-PFIZER INC-2011112264

PATIENT
  Sex: Female

DRUGS (5)
  1. SYNTHROID [Concomitant]
     Indication: THYROID DISORDER
     Dosage: UNK
  2. XANAX [Suspect]
     Dosage: 1 MG, UNK
     Dates: end: 20110512
  3. XANAX [Suspect]
     Indication: ANXIETY
     Dosage: 0.5 MG, UNK
     Route: 048
     Dates: start: 20080101
  4. XANAX [Suspect]
     Dosage: 0.5 MG, UNK
     Dates: start: 20110513
  5. PREVACID [Concomitant]
     Dosage: UNK

REACTIONS (12)
  - SKIN BURNING SENSATION [None]
  - MUSCLE SPASMS [None]
  - DIARRHOEA [None]
  - DECREASED APPETITE [None]
  - HEADACHE [None]
  - PALPITATIONS [None]
  - FEELING ABNORMAL [None]
  - MOVEMENT DISORDER [None]
  - ABDOMINAL PAIN UPPER [None]
  - BLOOD URINE PRESENT [None]
  - BURNING SENSATION [None]
  - FATIGUE [None]
